FAERS Safety Report 8208398-3 (Version None)
Quarter: 2012Q1

REPORT INFORMATION
  Report Type: 
  Country: None (occurrence: None)
  Receive Date: 20120314
  Receipt Date: 20120305
  Transmission Date: 20120608
  Serious: Yes (Hospitalization)
  Sender: FDA-Public Use
  Company Number: FR-ASTRAZENECA-2012SE16247

PATIENT
  Age: 4 Year
  Sex: Male
  Weight: 16 kg

DRUGS (13)
  1. ONCOVIN [Concomitant]
     Route: 042
     Dates: start: 20120209, end: 20120209
  2. DEXAMETHASONE [Concomitant]
     Route: 065
     Dates: start: 20120209, end: 20120213
  3. ODANSETRON [Concomitant]
     Route: 048
     Dates: start: 20111101
  4. MEOPA [Concomitant]
     Dates: start: 20120209, end: 20120209
  5. CYTARABINE [Concomitant]
     Route: 042
     Dates: start: 20120213, end: 20120213
  6. KETAMINE HCL [Concomitant]
     Dates: start: 20120209, end: 20120209
  7. MIDAZOLAM HCL [Concomitant]
     Dates: start: 20120209, end: 20120209
  8. CYCLOPHOSPHAMIDE [Concomitant]
     Route: 042
     Dates: start: 20120210, end: 20120210
  9. PLITICAN [Concomitant]
     Route: 042
     Dates: start: 20120201, end: 20120201
  10. OMEPRAZOLE [Suspect]
     Route: 048
     Dates: start: 20120209, end: 20120213
  11. NALBUPHINE [Concomitant]
     Dates: start: 20120209, end: 20120209
  12. METHOTREXATE [Interacting]
     Route: 042
     Dates: start: 20120209, end: 20120210
  13. GLEEVEC [Concomitant]
     Route: 048
     Dates: start: 20111101

REACTIONS (5)
  - DRUG LEVEL INCREASED [None]
  - PANCYTOPENIA [None]
  - RENAL FAILURE [None]
  - DRUG INTERACTION [None]
  - MOUTH INJURY [None]
